FAERS Safety Report 13105532 (Version 1)
Quarter: 2017Q1

REPORT INFORMATION
  Report Type: Spontaneous
  Country: US (occurrence: US)
  Receive Date: 20170111
  Receipt Date: 20170111
  Transmission Date: 20170428
  Serious: Yes (Hospitalization)
  Sender: FDA-Public Use
  Company Number: None

PATIENT
  Age: 28 Year
  Sex: Male
  Weight: 50.3 kg

DRUGS (1)
  1. CISPLATIN. [Suspect]
     Active Substance: CISPLATIN
     Dates: end: 20170102

REACTIONS (11)
  - Pyrexia [None]
  - Urine odour abnormal [None]
  - Urinary tract infection [None]
  - Pyelonephritis [None]
  - Culture urine positive [None]
  - Back pain [None]
  - Tachycardia [None]
  - Flank pain [None]
  - Suprapubic pain [None]
  - Chills [None]
  - Nausea [None]

NARRATIVE: CASE EVENT DATE: 20170105
